FAERS Safety Report 14424468 (Version 1)
Quarter: 2018Q1

REPORT INFORMATION
  Report Type: Spontaneous
  Country: US (occurrence: US)
  Receive Date: 20180122
  Receipt Date: 20180122
  Transmission Date: 20180509
  Serious: No
  Sender: FDA-Public Use
  Company Number: None

PATIENT
  Age: 36 Year
  Sex: Female
  Weight: 116.12 kg

DRUGS (1)
  1. VISTARIL [Suspect]
     Active Substance: HYDROXYZINE PAMOATE

REACTIONS (3)
  - Tremor [None]
  - Formication [None]
  - Anxiety [None]

NARRATIVE: CASE EVENT DATE: 20180116
